FAERS Safety Report 13993063 (Version 1)
Quarter: 2017Q3

REPORT INFORMATION
  Report Type: Spontaneous
  Country: US (occurrence: US)
  Receive Date: 20170920
  Receipt Date: 20170920
  Transmission Date: 20171128
  Serious: No
  Sender: FDA-Public Use
  Company Number: US-PFIZER INC-2017406453

PATIENT
  Age: 69 Year
  Sex: Female

DRUGS (3)
  1. ADVIL [Suspect]
     Active Substance: IBUPROFEN
     Indication: PERIPHERAL SWELLING
     Dosage: 400 MG, UNK
     Route: 048
     Dates: start: 20170917
  2. ADVIL [Suspect]
     Active Substance: IBUPROFEN
     Indication: EXOSTOSIS
     Dosage: 800 MG, 3X/DAY
     Route: 048
     Dates: start: 20170916, end: 20170916
  3. ADVIL [Suspect]
     Active Substance: IBUPROFEN
     Indication: COUGH
     Dosage: UNK

REACTIONS (13)
  - Mobility decreased [Unknown]
  - Feeling abnormal [Unknown]
  - Dizziness [Unknown]
  - Intentional product misuse [Unknown]
  - Somnolence [Unknown]
  - Nausea [Unknown]
  - Off label use [Unknown]
  - Sluggishness [Unknown]
  - Tongue disorder [Unknown]
  - Hypoaesthesia [Unknown]
  - Feeling hot [Unknown]
  - Dysphagia [Unknown]
  - Presyncope [Unknown]

NARRATIVE: CASE EVENT DATE: 20170916
